FAERS Safety Report 5980217 (Version 36)
Quarter: 2013Q4

REPORT INFORMATION
  Report Type: Spontaneous
  Country: US (occurrence: US)
  Receive Date: 20060208
  Receipt Date: 20131206
  Transmission Date: 20140711
  Serious: Yes (Other)
  Sender: FDA-Public Use
  Company Number: PHEH2006US01632

PATIENT
  Age: 69 Year
  Sex: Male
  Weight: 91.16 kg

DRUGS (13)
  1. AREDIA [Suspect]
     Indication: PLASMA CELL MYELOMA
     Dosage: 90 MG, QMO
     Route: 042
     Dates: start: 200202, end: 20031006
  2. ZOMETA [Suspect]
     Indication: PLASMA CELL MYELOMA
     Dosage: 3.5 MG MONTHLY
     Route: 042
     Dates: start: 200311, end: 200509
  3. ZOMETA [Suspect]
     Dosage: 4 MG, QMO
     Route: 042
     Dates: start: 20031103, end: 20051010
  4. REVLIMID [Suspect]
  5. DEXAMETHASONE [Suspect]
  6. THALIDOMIDE [Concomitant]
     Indication: PLASMA CELL MYELOMA
     Dates: start: 2001
  7. MELPHALAN [Concomitant]
  8. PLAVIX [Concomitant]
     Dosage: 75 MG, QD
  9. LORTAB [Concomitant]
     Dosage: 500 MG, PRN
  10. GLYBURIDE [Concomitant]
  11. ZANTAC [Concomitant]
     Dosage: 150 MG, QD
  12. OS-CAL [Concomitant]
     Dosage: 1 DF, BID
  13. OS-CAL [Concomitant]
     Dosage: 1 DF, BID

REACTIONS (115)
  - Osteonecrosis of jaw [Unknown]
  - Bone disorder [Recovering/Resolving]
  - Bone erosion [Unknown]
  - Neck mass [Recovering/Resolving]
  - Lymphadenopathy [Unknown]
  - Soft tissue disorder [Recovering/Resolving]
  - Wound haemorrhage [Recovering/Resolving]
  - Biopsy [Unknown]
  - Infection [Recovering/Resolving]
  - Primary sequestrum [Unknown]
  - Exposed bone in jaw [Unknown]
  - Pain [Recovering/Resolving]
  - Oedema mucosal [Recovering/Resolving]
  - Erythema [Recovering/Resolving]
  - Anxiety [Unknown]
  - Decreased interest [Unknown]
  - Osteolysis [Unknown]
  - Compression fracture [Unknown]
  - Calcification metastatic [Unknown]
  - Metastases to spine [Unknown]
  - Arthralgia [Unknown]
  - Osteoporosis [Unknown]
  - Radiculopathy [Unknown]
  - Carpal tunnel syndrome [Unknown]
  - Malignant melanoma [Unknown]
  - Neoplasm malignant [Unknown]
  - Upper respiratory tract infection [Unknown]
  - Pneumonia [Unknown]
  - Pleural effusion [Unknown]
  - Supraventricular tachycardia [Unknown]
  - Pancytopenia [Unknown]
  - Hyperlipidaemia [Unknown]
  - Rib fracture [Unknown]
  - Cellulitis [Unknown]
  - Dyspnoea exertional [Unknown]
  - Chest pain [Unknown]
  - Bone lesion [Unknown]
  - Diverticulum [Unknown]
  - Left ventricular hypertrophy [Unknown]
  - Aortic valve incompetence [Unknown]
  - Hypotension [Unknown]
  - Anaemia [Not Recovered/Not Resolved]
  - Benign prostatic hyperplasia [Recovered/Resolved]
  - Haemorrhage [Unknown]
  - Renal cyst [Unknown]
  - Spinal osteoarthritis [Unknown]
  - Facet joint syndrome [Unknown]
  - Lung infiltration [Unknown]
  - Osteoarthritis [Unknown]
  - Osteomyelitis [Unknown]
  - Hypertension [Unknown]
  - Increased upper airway secretion [Unknown]
  - Cough [Unknown]
  - Mitral valve incompetence [Unknown]
  - Dizziness [Unknown]
  - Dyslipidaemia [Unknown]
  - Fatigue [Unknown]
  - Atrial flutter [Unknown]
  - Varicose vein [Unknown]
  - Dyspepsia [Unknown]
  - Decreased appetite [Unknown]
  - Dermatitis [Unknown]
  - Local swelling [Unknown]
  - Pain in extremity [Unknown]
  - Swelling [Unknown]
  - Blister [Unknown]
  - Skin hypertrophy [Unknown]
  - Abscess limb [Unknown]
  - Tenosynovitis [Unknown]
  - Road traffic accident [Unknown]
  - Ocular hyperaemia [Unknown]
  - Eye irritation [Unknown]
  - Conjunctivitis [Unknown]
  - Salivary gland disorder [Unknown]
  - Nasal abscess [Unknown]
  - Nasal congestion [Unknown]
  - Neoplasm [Unknown]
  - Metastases to bone [Unknown]
  - Malignant neoplasm progression [Unknown]
  - Spinal column stenosis [Unknown]
  - Spinal cord disorder [Unknown]
  - Fall [Unknown]
  - Pulmonary mass [Unknown]
  - Pulmonary calcification [Unknown]
  - Haematuria [Unknown]
  - Spinal disorder [Unknown]
  - Muscular weakness [Unknown]
  - Bone neoplasm [Unknown]
  - Pneumothorax [Unknown]
  - Hyperglycaemia [Unknown]
  - Lung neoplasm malignant [Unknown]
  - Second primary malignancy [Unknown]
  - Peripheral arterial occlusive disease [Unknown]
  - Nocturia [Unknown]
  - Mass [Unknown]
  - Spinal deformity [Unknown]
  - Emphysema [Unknown]
  - Restrictive pulmonary disease [Unknown]
  - Rhinorrhoea [Unknown]
  - Pleural adhesion [Unknown]
  - Influenza [Unknown]
  - Chronic obstructive pulmonary disease [Unknown]
  - Rhinitis allergic [Unknown]
  - Coronary artery disease [Unknown]
  - Weight decreased [Unknown]
  - Musculoskeletal chest pain [Unknown]
  - Cholelithiasis [Unknown]
  - Prostatic specific antigen increased [Unknown]
  - Erectile dysfunction [Unknown]
  - Acute respiratory failure [Unknown]
  - Atrial fibrillation [Unknown]
  - Hypercholesterolaemia [Unknown]
  - Tooth loss [Unknown]
  - Gait disturbance [Unknown]
  - Thrombocytopenia [Recovered/Resolved]
